FAERS Safety Report 22139271 (Version 3)
Quarter: 2023Q2

REPORT INFORMATION
  Report Type: Spontaneous
  Country: US (occurrence: US)
  Receive Date: 20230327
  Receipt Date: 20230524
  Transmission Date: 20230722
  Serious: No
  Sender: FDA-Public Use
  Company Number: US-SA-SAC20230323000860

PATIENT
  Age: 48 Year
  Sex: Female

DRUGS (1)
  1. DUPIXENT [Suspect]
     Active Substance: DUPILUMAB
     Dosage: 300 MG, OTHER
     Route: 058

REACTIONS (7)
  - Skin infection [Recovered/Resolved]
  - Condition aggravated [Unknown]
  - Injection site rash [Unknown]
  - Injection site discolouration [Not Recovered/Not Resolved]
  - Injection site dryness [Unknown]
  - Injection site exfoliation [Not Recovered/Not Resolved]
  - Injection site bruising [Unknown]

NARRATIVE: CASE EVENT DATE: 20230103
